FAERS Safety Report 8044210 (Version 5)
Quarter: 2013Q1

REPORT INFORMATION
  Report Type: Spontaneous
  Country: US (occurrence: US)
  Receive Date: 20110719
  Receipt Date: 20130215
  Transmission Date: 20140127
  Serious: Yes (Death, Hospitalization, Congenital Anomaly, Other)
  Sender: FDA-Public Use
  Company Number: US-PFIZER INC-2011158466

PATIENT
  Sex: Male
  Weight: 4 kg

DRUGS (3)
  1. EFFEXOR XR [Suspect]
     Indication: DEPRESSION
     Dosage: 75 MG, 1X/DAY
     Route: 064
     Dates: start: 200601
  2. PRENATAL VITAMINS [Concomitant]
     Dosage: UNK
     Route: 064
  3. PREVACID [Concomitant]
     Dosage: 30 MG, UNK
     Route: 064
     Dates: start: 20080904

REACTIONS (21)
  - Maternal exposure timing unspecified [Fatal]
  - Intestinal malrotation [Fatal]
  - Cardiac failure [Fatal]
  - Renal failure [Fatal]
  - Arrhythmia [Fatal]
  - Hepatic function abnormal [Fatal]
  - Ventricular septal defect [Unknown]
  - Double outlet right ventricle [Unknown]
  - Univentricular heart [Unknown]
  - Coarctation of the aorta [Unknown]
  - Asplenia [Unknown]
  - Heterotaxia [Unknown]
  - Intraventricular haemorrhage [Unknown]
  - Congenital megacolon [Unknown]
  - Dextrocardia [Unknown]
  - Atrioventricular septal defect [Unknown]
  - Persistent left superior vena cava [Unknown]
  - Congenital aortic anomaly [Unknown]
  - Meconium plug syndrome [Unknown]
  - Cardiomegaly [Unknown]
  - Aorta hypoplasia [Unknown]
